FAERS Safety Report 20862847 (Version 1)
Quarter: 2022Q2

REPORT INFORMATION
  Report Type: Spontaneous
  Country: US (occurrence: None)
  Receive Date: 20220523
  Receipt Date: 20220523
  Transmission Date: 20220721
  Serious: Yes (Hospitalization)
  Sender: FDA-Public Use
  Company Number: None

PATIENT
  Age: 64 Year
  Sex: Male

DRUGS (4)
  1. TORSEMIDE [Suspect]
     Active Substance: TORSEMIDE
     Indication: Hypertension
     Dosage: FREQUENCY : TWICE A DAY;?
     Route: 048
     Dates: start: 20200212, end: 20220324
  2. TORSEMIDE [Suspect]
     Active Substance: TORSEMIDE
     Indication: Fluid retention
  3. METOLAZONE [Suspect]
     Active Substance: METOLAZONE
     Indication: Hypertension
     Dosage: FREQUENCY : DAILY;?
     Route: 048
     Dates: start: 20220302, end: 20220324
  4. METOLAZONE [Suspect]
     Active Substance: METOLAZONE
     Indication: Fluid retention

REACTIONS (8)
  - Hypokalaemia [None]
  - Hyponatraemia [None]
  - Metabolic alkalosis [None]
  - Acute kidney injury [None]
  - Wrong schedule [None]
  - Peripheral swelling [None]
  - Joint swelling [None]
  - Polyuria [None]

NARRATIVE: CASE EVENT DATE: 20220321
